FAERS Safety Report 10316694 (Version 2)
Quarter: 2015Q1

REPORT INFORMATION
  Report Type: Other
  Country: US (occurrence: US)
  Receive Date: 20140719
  Receipt Date: 20150211
  Transmission Date: 20150720
  Serious: Yes (Hospitalization, Other)
  Sender: FDA-Public Use
  Company Number: US-GSKPPD-2014GSK014230

PATIENT
  Age: 71 Year
  Sex: Female

DRUGS (21)
  1. ALLOPURINOL. [Concomitant]
     Active Substance: ALLOPURINOL
  2. SINGULAIR [Concomitant]
     Active Substance: MONTELUKAST SODIUM
  3. VICODIN [Concomitant]
     Active Substance: ACETAMINOPHEN\HYDROCODONE BITARTRATE
  4. FENTANYL. [Concomitant]
     Active Substance: FENTANYL
     Dosage: TREATMENT MEDICATION
  5. LASIX [Concomitant]
     Active Substance: FUROSEMIDE
     Dosage: TREATMENT MEDICATION
  6. ALDACTONE [Concomitant]
     Active Substance: SPIRONOLACTONE
  7. FENTANYL. [Concomitant]
     Active Substance: FENTANYL
  8. ZESTRIL [Concomitant]
     Active Substance: LISINOPRIL
  9. ZESTRIL [Concomitant]
     Active Substance: LISINOPRIL
     Dosage: TREATMENT MEDICATION
  10. SINGULAIR [Concomitant]
     Active Substance: MONTELUKAST SODIUM
     Dosage: TREATMENT MEDICATION
  11. AVANDAMET [Suspect]
     Active Substance: METFORMIN HYDROCHLORIDE\ROSIGLITAZONE MALEATE
     Indication: DIABETES MELLITUS
     Dosage: DATES OF AVANDAMET USE COULD NOT BE CONFIRMED IN RECORDS REVIEWED.
  12. ALDACTONE [Concomitant]
     Active Substance: SPIRONOLACTONE
     Dosage: TREATMENT MEDICATION
  13. COUMADIN [Concomitant]
     Active Substance: WARFARIN SODIUM
     Dates: end: 201005
  14. ATENOLOL. [Concomitant]
     Active Substance: ATENOLOL
  15. AVANDIA [Suspect]
     Active Substance: ROSIGLITAZONE MALEATE
     Indication: DIABETES MELLITUS
     Dosage: DATES OF AVANDIA USE COULD NOT BE CONFIRMED IN RECORDS REVIEWED.
     Route: 048
  16. IMDUR [Concomitant]
     Active Substance: ISOSORBIDE MONONITRATE
  17. ZANTAC [Concomitant]
     Active Substance: RANITIDINE HYDROCHLORIDE
     Dosage: TREATMENT MEDICATION
  18. COUMADIN [Concomitant]
     Active Substance: WARFARIN SODIUM
     Dosage: TREATMENT MEDICATION
  19. ZANTAC [Concomitant]
     Active Substance: RANITIDINE HYDROCHLORIDE
  20. LASIX [Concomitant]
     Active Substance: FUROSEMIDE
  21. ALLOPURINOL. [Concomitant]
     Active Substance: ALLOPURINOL
     Dosage: TREATMENT MEDICATION

REACTIONS (2)
  - Acute coronary syndrome [Recovered/Resolved]
  - Cardiac failure congestive [Unknown]

NARRATIVE: CASE EVENT DATE: 20100511
